FAERS Safety Report 5503017-9 (Version None)
Quarter: 2007Q4

REPORT INFORMATION
  Report Type: 
  Country: None (occurrence: None)
  Receive Date: 20071031
  Receipt Date: 20071023
  Transmission Date: 20080405
  Serious: Yes (Hospitalization)
  Sender: FDA-Public Use
  Company Number: CH-PURDUE-DEU_2007_0003545

PATIENT
  Sex: Female

DRUGS (5)
  1. OXYGESIC [Suspect]
     Indication: DRUG USE FOR UNKNOWN INDICATION
     Dosage: 40 MG, BID
     Route: 048
  2. CALCIMAGON [Concomitant]
  3. DAFLON [Concomitant]
  4. IBUPROFEN [Concomitant]
  5. DAFALGAN [Concomitant]

REACTIONS (1)
  - HEPATITIS [None]
